FAERS Safety Report 8079211-2 (Version None)
Quarter: 2012Q1

REPORT INFORMATION
  Report Type: 
  Country: None (occurrence: None)
  Receive Date: 20120124
  Receipt Date: 20120112
  Transmission Date: 20120608
  Serious: Yes (Life-Threatening, Hospitalization, Disabling, Other)
  Sender: FDA-Public Use
  Company Number: 2011P1009050

PATIENT
  Age: 55 Year
  Sex: Female
  Weight: 127.0072 kg

DRUGS (15)
  1. OMEPRAZOLE [Concomitant]
  2. PHENERGAN [Concomitant]
  3. ZAROXOLYN [Concomitant]
  4. ATENOLOL [Concomitant]
  5. OXYCODONE HCL AND ACETAMINOPHEN [Concomitant]
  6. FLONASE [Concomitant]
  7. METOLAZONE [Concomitant]
  8. METHENAMINE HIPPURATE [Suspect]
     Indication: PROPHYLAXIS URINARY TRACT INFECTION
     Dosage: 1 GRAM;QD;PO
     Route: 048
     Dates: start: 20040101
  9. MULTIPLE UNKNOWN MEDICATIONS [Concomitant]
  10. HYDROCHLOROTHIAZIDE [Concomitant]
  11. MELATONIN [Concomitant]
  12. ALBUTEROL METERED DOSE INHALER [Concomitant]
  13. METFORMIN HCL [Concomitant]
  14. TRIAMTERENE [Concomitant]
  15. SIMVASTATIN [Concomitant]

REACTIONS (27)
  - SINUS DISORDER [None]
  - RENAL FAILURE [None]
  - PYELONEPHRITIS [None]
  - ABDOMINAL PAIN UPPER [None]
  - BLOOD POTASSIUM DECREASED [None]
  - CYSTITIS KLEBSIELLA [None]
  - PARALYSIS [None]
  - SUICIDAL IDEATION [None]
  - MUSCULAR WEAKNESS [None]
  - WEIGHT DECREASED [None]
  - RENAL FAILURE ACUTE [None]
  - URETERIC OBSTRUCTION [None]
  - PYURIA [None]
  - SWELLING [None]
  - CARDITIS [None]
  - SEPSIS [None]
  - CYSTITIS ESCHERICHIA [None]
  - CONDITION AGGRAVATED [None]
  - COELIAC DISEASE [None]
  - CONSTIPATION [None]
  - MUSCULAR DYSTROPHY [None]
  - NASOPHARYNGITIS [None]
  - PANCREATITIS [None]
  - URINARY TRACT INFECTION [None]
  - PULMONARY HYPERTENSION [None]
  - GENERALISED OEDEMA [None]
  - HYDRONEPHROSIS [None]
